FAERS Safety Report 4886380-1 (Version None)
Quarter: 2006Q1

REPORT INFORMATION
  Report Type: 
  Country: None (occurrence: None)
  Receive Date: 20060120
  Receipt Date: 20051005
  Transmission Date: 20060701
  Serious: Yes (Hospitalization, Other)
  Sender: FDA-Public Use
  Company Number: US-MERCK-0510USA04796

PATIENT
  Age: 22 Year
  Sex: Female
  Weight: 30 kg

DRUGS (3)
  1. VIOXX [Suspect]
     Indication: RHEUMATOID ARTHRITIS
     Route: 048
     Dates: start: 20010901, end: 20020501
  2. VIOXX [Suspect]
     Route: 048
  3. PLAQUENIL [Concomitant]
     Route: 065

REACTIONS (6)
  - CARDIOVASCULAR DISORDER [None]
  - CHEST PAIN [None]
  - CONVULSION [None]
  - MALAISE [None]
  - MYOCARDIAL INFARCTION [None]
  - THROMBOSIS [None]
